FAERS Safety Report 13458229 (Version 1)
Quarter: 2017Q2

REPORT INFORMATION
  Report Type: Report from Study
  Country: FR (occurrence: FR)
  Receive Date: 20170419
  Receipt Date: 20170419
  Transmission Date: 20170916
  Serious: Yes (Hospitalization, Other)
  Sender: FDA-Public Use
  Company Number: FR-MERCK KGAA-8142036

PATIENT
  Age: 72 Year
  Sex: Female
  Weight: 53 kg

DRUGS (2)
  1. LEVOTHYROX [Concomitant]
     Active Substance: LEVOTHYROXINE
     Indication: HYPOTHYROIDISM
     Route: 048
     Dates: start: 1999
  2. AVELUMAB [Suspect]
     Active Substance: AVELUMAB
     Indication: NEUROENDOCRINE CARCINOMA OF THE SKIN
     Route: 042
     Dates: start: 20170105, end: 20170105

REACTIONS (5)
  - Paraneoplastic encephalomyelitis [Not Recovered/Not Resolved]
  - Asthenia [Not Recovered/Not Resolved]
  - Polyneuropathy in malignant disease [Not Recovered/Not Resolved]
  - Encephalitis [Not Recovered/Not Resolved]
  - Neuropathy peripheral [Not Recovered/Not Resolved]

NARRATIVE: CASE EVENT DATE: 20170105
